FAERS Safety Report 6535714-0 (Version None)
Quarter: 2010Q1

REPORT INFORMATION
  Report Type: 
  Country: None (occurrence: None)
  Receive Date: 20100113
  Receipt Date: 20100106
  Transmission Date: 20100710
  Serious: Yes (Other)
  Sender: FDA-Public Use
  Company Number: DE-SANOFI-AVENTIS-2009SA009634

PATIENT
  Age: 61 Year
  Sex: Male
  Weight: 75 kg

DRUGS (4)
  1. TRENTAL [Suspect]
     Route: 048
     Dates: start: 20091103, end: 20091105
  2. TRENTAL [Suspect]
     Indication: DIABETIC RETINOPATHY
     Route: 048
     Dates: start: 20091103, end: 20091105
  3. TRENTAL [Suspect]
     Route: 048
     Dates: start: 20091214
  4. TRENTAL [Suspect]
     Route: 048
     Dates: start: 20091214

REACTIONS (3)
  - CHROMATOPSIA [None]
  - HYPHAEMA [None]
  - VISUAL IMPAIRMENT [None]
